FAERS Safety Report 9688951 (Version 2)
Quarter: 2014Q1

REPORT INFORMATION
  Report Type: Spontaneous
  Country: US (occurrence: US)
  Receive Date: 20131114
  Receipt Date: 20140226
  Transmission Date: 20141002
  Serious: Yes (Hospitalization)
  Sender: FDA-Public Use
  Company Number: US-GLAXOSMITHKLINE-A1033650A

PATIENT
  Age: 33 Year
  Sex: Male

DRUGS (1)
  1. VOTRIENT [Suspect]
     Indication: NEOPLASM MALIGNANT
     Dosage: 800MG PER DAY
     Route: 065

REACTIONS (14)
  - Investigation [Unknown]
  - Hair colour changes [Unknown]
  - Diarrhoea [Unknown]
  - Abdominal pain upper [Unknown]
  - Alopecia [Unknown]
  - Pruritus [Unknown]
  - Dry skin [Unknown]
  - Epistaxis [Unknown]
  - Local swelling [Unknown]
  - Dyspnoea [Unknown]
  - Cough [Unknown]
  - Wheezing [Unknown]
  - Ocular icterus [Unknown]
  - Haemorrhage urinary tract [Unknown]
